FAERS Safety Report 5040460-9 (Version None)
Quarter: 2006Q2

REPORT INFORMATION
  Report Type: 
  Country: None (occurrence: None)
  Receive Date: 20060630
  Receipt Date: 20060306
  Transmission Date: 20061013
  Serious: Yes (Death, Other)
  Sender: FDA-Public Use
  Company Number: PHFR2006GB01078

PATIENT

DRUGS (1)
  1. ZOMETA [Suspect]
     Indication: OSTEOPOROSIS

REACTIONS (4)
  - CHRONIC OBSTRUCTIVE PULMONARY DISEASE [None]
  - INCORRECT DRUG ADMINISTRATION DURATION [None]
  - PERITONEAL DIALYSIS [None]
  - RENAL FAILURE [None]
